FAERS Safety Report 24890861 (Version 1)
Quarter: 2025Q1

REPORT INFORMATION
  Report Type: Spontaneous
  Country: SE (occurrence: SE)
  Receive Date: 20250127
  Receipt Date: 20250127
  Transmission Date: 20250409
  Serious: Yes (Other)
  Sender: MYLAN
  Company Number: None

PATIENT
  Age: 47 Year
  Sex: Female

DRUGS (4)
  1. ESTRADIOL\NORETHINDRONE [Suspect]
     Active Substance: ESTRADIOL\NORETHINDRONE
     Indication: Menopause
     Dosage: 1 DOSAGE FORM, QD (1/DAY)
     Route: 048
     Dates: start: 20241210, end: 20250104
  2. ESTRADIOL\NORETHINDRONE [Suspect]
     Active Substance: ESTRADIOL\NORETHINDRONE
     Indication: Osteoporosis
  3. LEVOTHYROXINE SODIUM [Concomitant]
     Active Substance: LEVOTHYROXINE SODIUM
     Dosage: 1 DOSAGE FORM, QD (1/DAY)
     Route: 048
  4. CETIRIZINE HYDROCHLORIDE [Concomitant]
     Active Substance: CETIRIZINE HYDROCHLORIDE
     Dosage: 1 DOSAGE FORM, QD (1/DAY)
     Route: 065

REACTIONS (6)
  - Feeling abnormal [Recovering/Resolving]
  - Major depression [Recovering/Resolving]
  - Arthralgia [Recovering/Resolving]
  - Headache [Recovering/Resolving]
  - Pain in extremity [Recovered/Resolved]
  - Acne [Not Recovered/Not Resolved]

NARRATIVE: CASE EVENT DATE: 20241213
